FAERS Safety Report 9534981 (Version 2)
Quarter: 2014Q2

REPORT INFORMATION
  Report Type: Report from Study
  Country: AU (occurrence: AU)
  Receive Date: 20130918
  Receipt Date: 20140422
  Transmission Date: 20141212
  Serious: Yes (Death, Hospitalization)
  Sender: FDA-Public Use
  Company Number: PHHY2013AU102374

PATIENT
  Age: 67 Year
  Sex: Male

DRUGS (29)
  1. OXALIPLATIN [Suspect]
     Indication: COLON CANCER
     Dosage: 165 MG BIW
     Route: 042
     Dates: start: 20130212
  2. OXALIPLATIN [Suspect]
     Dosage: 165 MG ONCE1 IN 2 WEEK WITH DOSAGE FORM 85 MG/M2
     Route: 042
     Dates: start: 20130604
  3. FLUOROURACIL [Suspect]
     Indication: COLON CANCER
     Dosage: 780 MG, BIW WITH DOSAGE FORM 400 MG/M2
     Route: 041
     Dates: start: 20130212, end: 20130702
  4. FLUOROURACIL [Suspect]
     Dosage: 4660 MG, BIW WITH DOSAGE FORM 2400 MG/M2
     Route: 040
     Dates: start: 20130212, end: 20130702
  5. CALCIUM FOLINATE [Suspect]
     Indication: COLON CANCER
     Dosage: 50 MG BIW
     Route: 042
     Dates: start: 20130212
  6. CALCIUM FOLINATE [Suspect]
     Dosage: 50 MG BIW WITH DOSAGE FORM 50 MG
     Route: 042
     Dates: start: 20130702
  7. BEVACIZUMAB [Suspect]
     Indication: COLON CANCER
     Dosage: 355 MG, BIW
     Route: 042
     Dates: start: 20130212
  8. BEVACIZUMAB [Suspect]
     Dosage: 355 MG BIW
     Route: 042
     Dates: start: 20130702
  9. OSTEVIT-D [Concomitant]
     Dosage: 1 DF (TDD)
     Dates: start: 201209
  10. CHLORHEXIDINE [Concomitant]
  11. SYMBICORT [Concomitant]
     Dosage: 2 DF, QD
     Dates: start: 2003
  12. SPIRIVA [Concomitant]
     Dosage: UNK UKN, UNK, 1 PUFF DAILY
     Dates: start: 2011
  13. ESOMEPRAZOLE MAGNESIUM [Concomitant]
     Dosage: 20 MG QD (TDD)
     Dates: start: 201108
  14. OXYCONTIN [Concomitant]
     Dosage: 30 MG BID
     Dates: start: 20130212
  15. PARACETAMOL [Concomitant]
     Dosage: 1 G AS REQUIRED
     Dates: start: 201206
  16. PARACETAMOL [Concomitant]
     Dosage: 1 G, UNK
     Dates: start: 20130728
  17. ENDONE [Concomitant]
     Dosage: 5 MG AS REQUIRED
     Dates: start: 20121225
  18. DUROGESIC [Concomitant]
     Dosage: 300 MG ONE IN THREE DAY
     Dates: start: 20130212
  19. COLOXYL [Concomitant]
     Dosage: 2 DF, BID
     Dates: start: 20130301
  20. DEXAMETHASONE [Concomitant]
     Dosage: 5 MG BIW
     Dates: start: 20130212
  21. DEXAMETHASONE [Concomitant]
     Dosage: UNK UKN, UNK
     Dates: start: 20130515, end: 20130702
  22. DEXAMETHASONE [Concomitant]
     Dosage: UNK UKN, UNK
     Dates: start: 20130703, end: 20130707
  23. DEXAMETHASONE [Concomitant]
     Dosage: UNK UKN, UNK
     Dates: start: 20130708
  24. BIOTENE DRY MOUTH [Concomitant]
  25. FLUCONAZOLE [Concomitant]
     Dosage: 1 DF (TDD)
     Route: 048
     Dates: start: 20130617
  26. NYSTATIN [Concomitant]
     Dosage: 1 ML (TDD)
     Route: 048
     Dates: start: 20130617
  27. ALUMINIUM [Concomitant]
     Dosage: 1 DF
     Dates: start: 20130301
  28. MAGNESIUM HYDROXIDE [Concomitant]
  29. SIMETICONE [Concomitant]

REACTIONS (7)
  - Pneumonia [Fatal]
  - Asthenia [Fatal]
  - Cough [Fatal]
  - Haemoptysis [Fatal]
  - Pneumonia streptococcal [Fatal]
  - Mouth ulceration [Unknown]
  - Sepsis [Recovered/Resolved]
